FAERS Safety Report 10779027 (Version 1)
Quarter: 2015Q1

REPORT INFORMATION
  Report Type: Spontaneous
  Country: US (occurrence: None)
  Receive Date: 20150205
  Receipt Date: 20150205
  Transmission Date: 20150721
  Serious: Yes (Other)
  Sender: FDA-Public Use
  Company Number: None

PATIENT
  Age: 88 Year
  Sex: Female
  Weight: 54.43 kg

DRUGS (5)
  1. ASPIRIN. [Concomitant]
     Active Substance: ASPIRIN
  2. OSCAL [Concomitant]
     Active Substance: CALCIUM CARBONATE
  3. LOTEMAX [Suspect]
     Active Substance: LOTEPREDNOL ETABONATE
     Indication: DRY EYE
     Dosage: 0.5%, 59 (?), TWICE DAY, DROP IN EACH EYE
     Dates: start: 20141127, end: 20141226
  4. MULTI VITAMINS [Concomitant]
  5. ATENOLOL. [Concomitant]
     Active Substance: ATENOLOL

REACTIONS (3)
  - Vision blurred [None]
  - Visual impairment [None]
  - Ocular discomfort [None]

NARRATIVE: CASE EVENT DATE: 20141227
